FAERS Safety Report 6169562-0 (Version None)
Quarter: 2009Q2

REPORT INFORMATION
  Report Type: 
  Country: None (occurrence: None)
  Receive Date: 20090428
  Receipt Date: 20090422
  Transmission Date: 20091009
  Serious: Yes (Other)
  Sender: FDA-Public Use
  Company Number: US-KINGPHARMUSA00001-K200900474

PATIENT
  Age: 64 Year
  Sex: Female

DRUGS (9)
  1. ALTACE [Suspect]
     Indication: CARDIAC FAILURE
     Dosage: 5 MG, QD
     Route: 048
     Dates: start: 20081216, end: 20081221
  2. ALTACE [Suspect]
     Dosage: UNK
  3. CARDENSIEL [Suspect]
     Indication: CARDIAC FAILURE
     Dosage: 2.5 MG, QD
     Route: 048
     Dates: start: 20081216
  4. FOLFOX-4 [Concomitant]
     Indication: RECTAL CANCER
     Dosage: UNK
     Dates: start: 20081023, end: 20080101
  5. FOLFOX-4 [Concomitant]
     Dosage: UNK
     Dates: start: 20081106, end: 20080101
  6. FOLFOX-4 [Concomitant]
     Dosage: UNK
     Dates: start: 20081120
  7. AVASTIN [Concomitant]
     Indication: RECTAL CANCER
     Dosage: UNK
     Dates: start: 20081023, end: 20080101
  8. AVASTIN [Concomitant]
     Dosage: UNK
     Dates: start: 20081106, end: 20080101
  9. AVASTIN [Concomitant]
     Dosage: UNK
     Dates: start: 20081120

REACTIONS (5)
  - DEHYDRATION [None]
  - HYPERCREATININAEMIA [None]
  - HYPOTENSION [None]
  - OLIGURIA [None]
  - RENAL FAILURE ACUTE [None]
